FAERS Safety Report 9735038 (Version 2)
Quarter: 2013Q4

REPORT INFORMATION
  Report Type: Spontaneous
  Country: US (occurrence: US)
  Receive Date: 20131206
  Receipt Date: 20131219
  Transmission Date: 20140711
  Serious: Yes (Life-Threatening)
  Sender: FDA-Public Use
  Company Number: US-009507513-1312USA002702

PATIENT
  Sex: 0

DRUGS (1)
  1. SYLATRON [Suspect]
     Indication: MALIGNANT MELANOMA STAGE III
     Dosage: UNK, SYLATRON KIT
     Route: 058
     Dates: start: 201310, end: 2013

REACTIONS (4)
  - Mean cell volume increased [Recovering/Resolving]
  - Haemolysis [Recovering/Resolving]
  - Feeling hot [Recovering/Resolving]
  - Anaemia [Recovering/Resolving]
